FAERS Safety Report 13641603 (Version 1)
Quarter: 2017Q2

REPORT INFORMATION
  Report Type: Spontaneous
  Country: US (occurrence: US)
  Receive Date: 20170611
  Receipt Date: 20170611
  Transmission Date: 20170830
  Serious: Yes (Other)
  Sender: FDA-Public Use
  Company Number: None

PATIENT
  Age: 70 Year
  Sex: Male
  Weight: 72 kg

DRUGS (10)
  1. RAMIPRIL. [Concomitant]
     Active Substance: RAMIPRIL
  2. AMPYRA [Concomitant]
     Active Substance: DALFAMPRIDINE
  3. ASPIRIN. [Concomitant]
     Active Substance: ASPIRIN
  4. ASPIRIN. [Concomitant]
     Active Substance: ASPIRIN
  5. COLACE [Concomitant]
     Active Substance: DOCUSATE SODIUM
  6. CRESTOR [Concomitant]
     Active Substance: ROSUVASTATIN CALCIUM
  7. TAFARIDIL [Concomitant]
  8. OCREVUS [Suspect]
     Active Substance: OCRELIZUMAB
     Indication: MULTIPLE SCLEROSIS
  9. OCREVUS [Suspect]
     Active Substance: OCRELIZUMAB
     Indication: HYPERTENSION
  10. MIRALAX [Concomitant]
     Active Substance: POLYETHYLENE GLYCOL 3350

REACTIONS (4)
  - Dizziness [None]
  - Constipation [None]
  - Hypotension [None]
  - Presyncope [None]

NARRATIVE: CASE EVENT DATE: 20170610
